FAERS Safety Report 11105645 (Version 1)
Quarter: 2015Q2

REPORT INFORMATION
  Report Type: Spontaneous
  Country: None (occurrence: None)
  Receive Date: 20150508
  Receipt Date: 20150508
  Transmission Date: 20150821
  Serious: Yes (Other)
  Sender: FDA-Public Use
  Company Number: None

PATIENT
  Age: 58 Year
  Sex: Female
  Weight: 68.04 kg

DRUGS (16)
  1. ASA (LOW DOSE) [Concomitant]
  2. DILAUDID [Concomitant]
     Active Substance: HYDROMORPHONE HYDROCHLORIDE
  3. DITROPAN XL [Suspect]
     Active Substance: OXYBUTYNIN CHLORIDE
     Indication: BLADDER SPASM
     Dosage: 1 PILL  PER DAY  ONCE DAILY TAKEN BY MOUTH
     Route: 048
     Dates: start: 20150430, end: 20150430
  4. MIRALAX [Concomitant]
     Active Substance: POLYETHYLENE GLYCOL 3350
  5. CALCIUM [Concomitant]
     Active Substance: CALCIUM
  6. XYZAL [Concomitant]
     Active Substance: LEVOCETIRIZINE DIHYDROCHLORIDE
  7. FLUTICASONE [Concomitant]
     Active Substance: FLUTICASONE\FLUTICASONE PROPIONATE
  8. COMPAZINE [Concomitant]
     Active Substance: PROCHLORPERAZINE MALEATE
  9. PROTONIX [Concomitant]
     Active Substance: PANTOPRAZOLE SODIUM
  10. IPRATROPIUM [Concomitant]
     Active Substance: IPRATROPIUM
  11. PHENERGAN [Concomitant]
     Active Substance: PROMETHAZINE HYDROCHLORIDE
  12. SUCRALFATE. [Concomitant]
     Active Substance: SUCRALFATE
  13. VALIUM [Concomitant]
     Active Substance: DIAZEPAM
  14. LAMICTAL [Concomitant]
     Active Substance: LAMOTRIGINE
  15. LINZESS [Concomitant]
     Active Substance: LINACLOTIDE
  16. CALCIUM WITH VITAMIN D [Concomitant]
     Active Substance: CALCIUM\VITAMIN D

REACTIONS (1)
  - Vulvitis [None]

NARRATIVE: CASE EVENT DATE: 20150501
